FAERS Safety Report 8096053-2 (Version None)
Quarter: 2012Q1

REPORT INFORMATION
  Report Type: 
  Country: None (occurrence: None)
  Receive Date: 20120129
  Receipt Date: 20111215
  Transmission Date: 20120608
  Serious: No
  Sender: FDA-Public Use
  Company Number: US-ABBOTT-11P-163-0883735-00

PATIENT
  Age: 33 Year
  Sex: Female

DRUGS (15)
  1. CLARITIN [Concomitant]
     Indication: HYPERSENSITIVITY
  2. ALLEGRA [Concomitant]
     Indication: HYPERSENSITIVITY
     Dosage: 180 MG DAILY
  3. ROBAXIN [Concomitant]
     Indication: MUSCLE SPASMS
  4. HUMIRA [Suspect]
     Indication: CROHN'S DISEASE
     Dosage: LOADING DOSE #1; 160 MG X 1 DOSE ONLY
     Dates: start: 20111114, end: 20111114
  5. PENTASA [Concomitant]
     Indication: PRODUCT USED FOR UNKNOWN INDICATION
     Dosage: 500 MG/TAB X4=2000MG UNIT DOSE
  6. ULTRAM [Concomitant]
     Indication: TENSION HEADACHE
  7. SUPPLEMENTS [Concomitant]
     Indication: PRODUCT USED FOR UNKNOWN INDICATION
     Dosage: DAILY
  8. HUMIRA [Suspect]
     Dosage: LOADING DOSE #2; 80 MG X 1 DOSE ONLY
     Dates: start: 20111128, end: 20111128
  9. FERROUS SULFATE TAB [Concomitant]
     Indication: PRODUCT USED FOR UNKNOWN INDICATION
     Dosage: 325 MG DAILY
  10. LORTAB [Concomitant]
     Indication: PAIN
     Dosage: 5/500MG
  11. VITAMIN TAB [Concomitant]
     Indication: PRODUCT USED FOR UNKNOWN INDICATION
     Dosage: DAILY
  12. PRILOSEC [Concomitant]
     Indication: PRODUCT USED FOR UNKNOWN INDICATION
  13. WELLBUTRIN [Concomitant]
     Indication: DEPRESSION
     Dosage: 150 MG DAILY; SR
  14. DITROPAN [Concomitant]
     Indication: HYPERTONIC BLADDER
     Dosage: 5 MG DAILY
  15. MYSOLINE [Concomitant]
     Indication: ESSENTIAL TREMOR

REACTIONS (3)
  - INFLUENZA LIKE ILLNESS [None]
  - SINUSITIS [None]
  - SINUS CONGESTION [None]
